FAERS Safety Report 5128081-0 (Version None)
Quarter: 2006Q4

REPORT INFORMATION
  Report Type: 
  Country: None (occurrence: None)
  Receive Date: 20061010
  Receipt Date: 20061003
  Transmission Date: 20070319
  Serious: Yes (Hospitalization)
  Sender: FDA-Public Use
  Company Number: HQWYE559204OCT06

PATIENT
  Age: 36 Year
  Sex: Female

DRUGS (5)
  1. MINOCYCLINE HCL [Suspect]
     Indication: PYREXIA
     Dosage: 200 MG 1X PER 1 DAY
     Route: 041
     Dates: start: 20060830, end: 20060913
  2. ARTANE [Suspect]
     Dosage: 6 MG 1X PER 1 DAY
     Route: 048
     Dates: start: 20060831, end: 20061002
  3. ALPRAZOLAM [Suspect]
     Dosage: ORAL
     Dates: start: 20060831, end: 20061002
  4. CLINDAMYCIN HYDROCHLORIDE [Suspect]
     Dosage: 600 MG 1X PER 1 DAY
     Route: 041
     Dates: start: 20060914, end: 20060919
  5. FIRSTCIN (CEFOZOPRAN HYDROCHLORIDE, INJECTION) [Suspect]
     Dosage: 2 G 1X PER 1 DAY
     Route: 041
     Dates: start: 20060830, end: 20060913

REACTIONS (2)
  - DRUG ERUPTION [None]
  - LIVER FUNCTION TEST ABNORMAL [None]
